FAERS Safety Report 7312460-7 (Version None)
Quarter: 2011Q1

REPORT INFORMATION
  Report Type: 
  Country: None (occurrence: None)
  Receive Date: 20110224
  Receipt Date: 20110215
  Transmission Date: 20110831
  Serious: Yes (Other)
  Sender: FDA-Public Use
  Company Number: US-ROCHE-734588

PATIENT
  Sex: Female
  Weight: 61.2 kg

DRUGS (3)
  1. TYLENOL [Concomitant]
  2. MOTRIN [Concomitant]
  3. ACCUTANE [Suspect]
     Route: 065
     Dates: start: 19960601, end: 19961201

REACTIONS (8)
  - ARTHRITIS [None]
  - INFLAMMATORY BOWEL DISEASE [None]
  - PEPTIC ULCER [None]
  - DEPRESSION [None]
  - GASTROINTESTINAL INJURY [None]
  - CROHN'S DISEASE [None]
  - COLITIS ULCERATIVE [None]
  - COLONIC POLYP [None]
